FAERS Safety Report 14593337 (Version 1)
Quarter: 2018Q1

REPORT INFORMATION
  Report Type: Spontaneous
  Country: FR (occurrence: FR)
  Receive Date: 20180302
  Receipt Date: 20180302
  Transmission Date: 20180509
  Serious: Yes (Other)
  Sender: FDA-Public Use
  Company Number: FR-009507513-1801FRA006198

PATIENT
  Age: 30 Year
  Sex: Female
  Weight: 38 kg

DRUGS (1)
  1. NEXPLANON [Suspect]
     Active Substance: ETONOGESTREL
     Dosage: 1 IMPLANT
     Route: 059
     Dates: end: 20170928

REACTIONS (8)
  - Device deployment issue [Recovered/Resolved]
  - Complication associated with device [Recovered/Resolved]
  - Sensorimotor disorder [Unknown]
  - Pelvic pain [Unknown]
  - Median nerve injury [Unknown]
  - Metrorrhagia [Unknown]
  - Device dislocation [Recovered/Resolved]
  - General anaesthesia [Unknown]

NARRATIVE: CASE EVENT DATE: 20170928
